FAERS Safety Report 5341482-0 (Version None)
Quarter: 2007Q2

REPORT INFORMATION
  Report Type: 
  Country: None (occurrence: None)
  Receive Date: 20070530
  Receipt Date: 20070530
  Transmission Date: 20071010
  Serious: No
  Sender: FDA-Public Use
  Company Number: None

PATIENT
  Age: 63 Year
  Sex: Female
  Weight: 89.6 kg

DRUGS (1)
  1. LABETALOL 200 MG GOLDLINE [Suspect]
     Indication: HYPERTENSION
     Dosage: ONE PO BID
     Route: 048
     Dates: start: 20070518

REACTIONS (2)
  - PRURITUS [None]
  - RASH [None]
